FAERS Safety Report 5696243-X (Version None)
Quarter: 2008Q2

REPORT INFORMATION
  Report Type: 
  Country: None (occurrence: None)
  Receive Date: 20080407
  Receipt Date: 20080327
  Transmission Date: 20081010
  Serious: Yes (Disabling, Other)
  Sender: FDA-Public Use
  Company Number: JP-PFIZER INC-2008024243

PATIENT
  Sex: Male
  Weight: 47.3 kg

DRUGS (12)
  1. GABAPEN [Suspect]
     Route: 050
  2. STREPTOMYCIN SULFATE [Suspect]
     Route: 030
  3. PREDONINE [Concomitant]
     Route: 050
  4. PANTOSIN [Concomitant]
     Route: 050
  5. TAKEPRON [Concomitant]
     Route: 050
  6. ALEVIATIN [Concomitant]
     Route: 050
  7. CRAVIT [Concomitant]
     Route: 050
  8. ITRIZOLE [Concomitant]
     Route: 050
  9. ENTERONON R [Concomitant]
     Route: 050
  10. BAKTAR [Concomitant]
     Route: 050
  11. EPOGIN [Concomitant]
     Route: 058
  12. SOLUTIONS FOR PARENTERAL NUTRITION [Concomitant]
     Route: 050
     Dates: start: 20070115, end: 20080303

REACTIONS (2)
  - BACTERIA URINE [None]
  - RENAL IMPAIRMENT [None]
